FAERS Safety Report 20654776 (Version 2)
Quarter: 2024Q2

REPORT INFORMATION
  Report Type: Spontaneous
  Country: US (occurrence: US)
  Receive Date: 20220330
  Receipt Date: 20240529
  Transmission Date: 20240716
  Serious: Yes (Other)
  Sender: FDA-Public Use
  Company Number: US-CELGENE-USA-20220303600

PATIENT
  Age: 46 Year
  Sex: Female

DRUGS (1)
  1. REVLIMID [Suspect]
     Active Substance: LENALIDOMIDE
     Indication: Plasma cell myeloma
     Dosage: 25 MILLIGRAM, 21 IN 28 DAYS
     Route: 048
     Dates: start: 20211208

REACTIONS (2)
  - Psoriasis [Unknown]
  - Thrombosis [Unknown]
